FAERS Safety Report 10356661 (Version 1)
Quarter: 2014Q3

REPORT INFORMATION
  Report Type: Spontaneous
  Country: IN (occurrence: IN)
  Receive Date: 20140801
  Receipt Date: 20140801
  Transmission Date: 20150326
  Serious: Yes (Hospitalization)
  Sender: FDA-Public Use
  Company Number: IN-SUN PHARMACEUTICAL INDUSTRIES LTD-2014SUN01694

PATIENT

DRUGS (10)
  1. OLANZAPINE 2.5 MG TABLETS [Suspect]
     Active Substance: OLANZAPINE
     Indication: HALLUCINATION
     Route: 065
  2. OLANZAPINE 2.5 MG TABLETS [Suspect]
     Active Substance: OLANZAPINE
     Indication: DELUSION
  3. RISPERIDONE. [Suspect]
     Active Substance: RISPERIDONE
     Indication: DELUSION
  4. LITHIUM [Suspect]
     Active Substance: LITHIUM CARBONATE
     Indication: DELUSION
  5. RISPERIDONE. [Suspect]
     Active Substance: RISPERIDONE
     Indication: HALLUCINATION
     Route: 065
  6. CLONAZEPAM 0.5 MG TABLET [Suspect]
     Active Substance: CLONAZEPAM
     Indication: HALLUCINATION
     Route: 065
  7. VALPROIC ACID. [Suspect]
     Active Substance: VALPROIC ACID
     Indication: HALLUCINATION
     Route: 065
  8. ONDANSETRON. [Suspect]
     Active Substance: ONDANSETRON
     Indication: PRODUCT USED FOR UNKNOWN INDICATION
     Route: 065
  9. LITHIUM [Suspect]
     Active Substance: LITHIUM CARBONATE
     Indication: HALLUCINATION
     Route: 065
  10. VALPROIC ACID. [Suspect]
     Active Substance: VALPROIC ACID
     Indication: DELUSION

REACTIONS (4)
  - Pneumonia aspiration [None]
  - Neuroleptic malignant syndrome [Recovered/Resolved]
  - Coma scale abnormal [None]
  - Serotonin syndrome [Recovered/Resolved]
